FAERS Safety Report 8009080 (Version 4)
Quarter: 2013Q1

REPORT INFORMATION
  Report Type: Report from Study
  Country: US (occurrence: US)
  Receive Date: 20110624
  Receipt Date: 20130308
  Transmission Date: 20140127
  Serious: Yes (Hospitalization, Other)
  Sender: FDA-Public Use
  Company Number: US-PFIZER INC-2011121543

PATIENT
  Age: 64 Year
  Sex: Male

DRUGS (2)
  1. LIPITOR [Suspect]
     Dosage: 10 MG, 1X/DAY
     Route: 048
     Dates: start: 200901, end: 201102
  2. CIPROFLOXACIN [Concomitant]

REACTIONS (7)
  - Influenza [Unknown]
  - Diarrhoea [Unknown]
  - Candida infection [Unknown]
  - Weight decreased [Unknown]
  - Blood pressure decreased [Unknown]
  - Dizziness [Unknown]
  - Somnolence [Unknown]
